FAERS Safety Report 18128877 (Version 2)
Quarter: 2020Q3

REPORT INFORMATION
  Report Type: Spontaneous
  Country: NL (occurrence: NL)
  Receive Date: 20200810
  Receipt Date: 20200824
  Transmission Date: 20201103
  Serious: Yes (Death, Life-Threatening, Hospitalization, Other)
  Sender: FDA-Public Use
  Company Number: NL-AUROBINDO-AUR-APL-2019-085021

PATIENT
  Age: 77 Year
  Sex: Male

DRUGS (22)
  1. VANCOMYCIN [Suspect]
     Active Substance: VANCOMYCIN
     Indication: STREPTOCOCCAL INFECTION
     Dosage: UNK
     Route: 042
  2. CEFTRIAXONE. [Suspect]
     Active Substance: CEFTRIAXONE
     Indication: HEADACHE
     Dosage: 2 GRAM, TWO TIMES A DAY
     Route: 042
  3. AMOXICILLIN. [Suspect]
     Active Substance: AMOXICILLIN
     Indication: BRAIN ABSCESS
     Dosage: 2 G, SIX TIMES DAILY
     Route: 042
  4. VANCOMYCIN POWDER FOR CONCENTRATE FOR SOLUTION FOR INFUSION [Suspect]
     Active Substance: VANCOMYCIN HYDROCHLORIDE
     Indication: PRODUCT USED FOR UNKNOWN INDICATION
     Dosage: UNK
     Route: 042
  5. METRONIDAZOLE. [Suspect]
     Active Substance: METRONIDAZOLE
     Indication: BRAIN ABSCESS
     Dosage: 500 MILLIGRAM, 3 TIMES A DAY
     Route: 042
  6. CLARITHROMYCIN FILM?COATED TABLET [Suspect]
     Active Substance: CLARITHROMYCIN
     Indication: BRAIN ABSCESS
     Dosage: 500 MILLIGRAM, ONCE A DAY
     Route: 048
  7. CLEMIZOLE PENICILLIN [Suspect]
     Active Substance: CLEMIZOLE PENICILLIN
     Indication: BRAIN ABSCESS
     Dosage: 1200 INTERNATIONAL UNIT, ONCE A DAY
     Route: 042
  8. METRONIDAZOLE. [Suspect]
     Active Substance: METRONIDAZOLE
     Indication: BACTERIAL INFECTION
  9. CLARITHROMYCIN. [Suspect]
     Active Substance: CLARITHROMYCIN
     Indication: NIGHT SWEATS
  10. CLARITHROMYCIN. [Suspect]
     Active Substance: CLARITHROMYCIN
     Indication: BRAIN ABSCESS
  11. METRONIDAZOLE. [Suspect]
     Active Substance: METRONIDAZOLE
     Indication: BACTERIAL INFECTION
  12. VANCOMYCIN [Suspect]
     Active Substance: VANCOMYCIN
     Indication: BRAIN ABSCESS
     Dosage: GUIDED BY PLASMA CONCENTRATION
     Route: 042
  13. METRONIDAZOLE. [Suspect]
     Active Substance: METRONIDAZOLE
     Indication: BRAIN ABSCESS
     Dosage: 500 MILLIGRAM, 3 TIMES A DAY
     Route: 042
  14. NOREPINEPHRINE. [Concomitant]
     Active Substance: NOREPINEPHRINE
     Indication: PRODUCT USED FOR UNKNOWN INDICATION
     Dosage: UNK
     Route: 065
  15. CLARITHROMYCIN. [Suspect]
     Active Substance: CLARITHROMYCIN
     Indication: CONFUSIONAL STATE
     Dosage: 250 MILLIGRAM, TWO TIMES A DAY
     Route: 048
  16. CEFTRIAXONE. [Suspect]
     Active Substance: CEFTRIAXONE
     Indication: BRAIN ABSCESS
     Dosage: 2 GRAM, TWO TIMES A DAY
     Route: 042
  17. CLARITHROMYCIN. [Suspect]
     Active Substance: CLARITHROMYCIN
     Indication: HEADACHE
  18. CEFTRIAXONE. [Suspect]
     Active Substance: CEFTRIAXONE
     Dosage: UNK
     Route: 065
  19. CEFTRIAXONE. [Suspect]
     Active Substance: CEFTRIAXONE
     Indication: CONFUSIONAL STATE
     Dosage: UNK
     Route: 065
  20. CLEMIZOLE PENICILLIN [Suspect]
     Active Substance: CLEMIZOLE PENICILLIN
     Indication: ERYTHEMA
     Dosage: 12000000 INTERNATIONAL UNIT, ONCE A DAY
     Route: 042
  21. PENICILLIN [Suspect]
     Active Substance: PENICILLIN
     Indication: ERYTHEMA
     Dosage: 12 MILLION UNITS EVERY 24 HOURS
     Route: 042
  22. HYDROCORTISONE. [Concomitant]
     Active Substance: HYDROCORTISONE
     Indication: PRODUCT USED FOR UNKNOWN INDICATION
     Dosage: 300 MILLIGRAM, ONCE A DAY
     Route: 065

REACTIONS (28)
  - C-reactive protein increased [Fatal]
  - Prothrombin time prolonged [Fatal]
  - Blood lactate dehydrogenase increased [Fatal]
  - Acute hepatic failure [Fatal]
  - Disorientation [Fatal]
  - Blood creatinine increased [Fatal]
  - Respiratory failure [Fatal]
  - Renal failure [Fatal]
  - Blood bilirubin increased [Fatal]
  - Drug reaction with eosinophilia and systemic symptoms [Fatal]
  - Liver function test abnormal [Fatal]
  - Urine output decreased [Fatal]
  - Dyspnoea [Fatal]
  - Oliguria [Fatal]
  - Jaundice [Fatal]
  - Pruritus [Fatal]
  - Acute kidney injury [Fatal]
  - Haemodynamic instability [Fatal]
  - Haemoglobin decreased [Fatal]
  - Alanine aminotransferase increased [Fatal]
  - Heart rate increased [Fatal]
  - Erythema [Fatal]
  - Skin exfoliation [Fatal]
  - Pyrexia [Fatal]
  - Gamma-glutamyltransferase increased [Fatal]
  - Blood alkaline phosphatase increased [Fatal]
  - Multiple organ dysfunction syndrome [Fatal]
  - Diffuse alveolar damage [Fatal]
